FAERS Safety Report 6171770-X (Version None)
Quarter: 2009Q2

REPORT INFORMATION
  Report Type: 
  Country: None (occurrence: None)
  Receive Date: 20090424
  Receipt Date: 20090127
  Transmission Date: 20091009
  Serious: No
  Sender: FDA-Public Use
  Company Number: SPV1-2008-02799

PATIENT
  Age: 34 Year
  Sex: Female
  Weight: 54.4 kg

DRUGS (3)
  1. VYVANSE [Suspect]
     Indication: ATTENTION DEFICIT/HYPERACTIVITY DISORDER
     Dosage: 1X/DAY:QD, ORAL ; 70 MG, 1X/DAY:QD, ORAL ; 70MG AT 8:00AM AND 50MG AT 1:00PM AS REQUIRED, ORAL
     Route: 048
     Dates: start: 20080101, end: 20080101
  2. VYVANSE [Suspect]
     Indication: ATTENTION DEFICIT/HYPERACTIVITY DISORDER
     Dosage: 1X/DAY:QD, ORAL ; 70 MG, 1X/DAY:QD, ORAL ; 70MG AT 8:00AM AND 50MG AT 1:00PM AS REQUIRED, ORAL
     Route: 048
     Dates: start: 20081101, end: 20080101
  3. VYVANSE [Suspect]
     Indication: ATTENTION DEFICIT/HYPERACTIVITY DISORDER
     Dosage: 1X/DAY:QD, ORAL ; 70 MG, 1X/DAY:QD, ORAL ; 70MG AT 8:00AM AND 50MG AT 1:00PM AS REQUIRED, ORAL
     Route: 048
     Dates: start: 20080101, end: 20081201

REACTIONS (3)
  - DRUG EFFECT DECREASED [None]
  - INAPPROPRIATE SCHEDULE OF DRUG ADMINISTRATION [None]
  - OVERDOSE [None]
